FAERS Safety Report 7815217-3 (Version None)
Quarter: 2011Q4

REPORT INFORMATION
  Report Type: 
  Country: None (occurrence: None)
  Receive Date: 20111014
  Receipt Date: 20111004
  Transmission Date: 20120403
  Serious: Yes (Hospitalization)
  Sender: FDA-Public Use
  Company Number: FR-JNJFOC-20110908654

PATIENT
  Sex: Female

DRUGS (4)
  1. INFLIXIMAB, RECOMBINANT [Suspect]
     Indication: CROHN'S DISEASE
     Dosage: 4TH INFUSION
     Route: 042
     Dates: start: 20041214
  2. INFLIXIMAB, RECOMBINANT [Suspect]
     Route: 042
     Dates: start: 20030324, end: 20030324
  3. INFLIXIMAB, RECOMBINANT [Suspect]
     Dosage: 3 INFUSIONS
     Route: 042
     Dates: start: 20001201, end: 20110201
  4. IMMUNOMODULATORS [Concomitant]
     Route: 065

REACTIONS (3)
  - ILEOCOLECTOMY [None]
  - CARDIAC FAILURE [None]
  - CROHN'S DISEASE [None]
